FAERS Safety Report 9522737 (Version 1)
Quarter: 2013Q3

REPORT INFORMATION
  Report Type: Spontaneous
  Country: GB (occurrence: GB)
  Receive Date: 20130913
  Receipt Date: 20130913
  Transmission Date: 20140515
  Serious: Yes (Death)
  Sender: FDA-Public Use
  Company Number: GB-JNJFOC-20130906526

PATIENT
  Age: 84 Year
  Sex: Female

DRUGS (10)
  1. RISPERIDONE [Suspect]
     Indication: PRODUCT USED FOR UNKNOWN INDICATION
     Route: 048
     Dates: start: 20120831, end: 20130812
  2. ACIDEX [Concomitant]
     Indication: MYOCARDIAL INFARCTION
     Route: 065
     Dates: start: 20111105, end: 20130819
  3. ASPIRIN [Concomitant]
     Indication: MYOCARDIAL INFARCTION
     Route: 065
     Dates: start: 20111105, end: 20130819
  4. ATORVASTATIN [Concomitant]
     Route: 065
  5. BISOPROLOL [Concomitant]
     Indication: MYOCARDIAL INFARCTION
     Route: 065
     Dates: start: 20111105, end: 20130819
  6. CANDESARTAN [Concomitant]
     Indication: MYOCARDIAL INFARCTION
     Route: 065
     Dates: start: 20111105, end: 20130819
  7. FUROSEMIDE [Concomitant]
     Indication: MYOCARDIAL INFARCTION
     Route: 065
     Dates: start: 20111105, end: 20130819
  8. NITROFURANTOIN [Concomitant]
     Indication: URINARY TRACT INFECTION
     Route: 065
     Dates: start: 20130814, end: 20130821
  9. RANITIDINE [Concomitant]
     Indication: MYOCARDIAL INFARCTION
     Route: 065
     Dates: start: 20111105, end: 20130819
  10. TRAZODONE [Concomitant]
     Indication: DEPRESSION
     Route: 065
     Dates: start: 20121001, end: 20130819

REACTIONS (1)
  - Convulsion [Fatal]
